FAERS Safety Report 10602037 (Version 1)
Quarter: 2014Q4

REPORT INFORMATION
  Report Type: Spontaneous
  Country: IT (occurrence: None)
  Receive Date: 20141120
  Receipt Date: 20141120
  Transmission Date: 20150529
  Serious: Yes (Other)
  Sender: FDA-Public Use
  Company Number: 7333834

PATIENT
  Age: 81 Year
  Sex: Female

DRUGS (6)
  1. EUTIROX (LEVOTHYROXINE SODIUM) [Suspect]
     Active Substance: LEVOTHYROXINE SODIUM
     Indication: HYPOTHYROIDISM
     Route: 048
     Dates: start: 20110101, end: 20140725
  2. BISOPROLOL HEMIFUMARATE (BISOPROLOL FUMARATE) (BISOPROLOL FUMARATE) [Concomitant]
  3. RUPAFIN (RUPATADINE FUMARATE) [Concomitant]
  4. PANTOPRAZOLE SODIUM SESQUIHYDRATE [Concomitant]
     Active Substance: PANTOPRAZOLE SODIUM
  5. CARDIOASPIRIN (ACETYLSALICYLIC ACID) [Concomitant]
     Active Substance: ASPIRIN
  6. TALOFEN (PROMAZINE HYDROCHLORIDE) (PROMAZINE HYDROCHLORIDE) [Concomitant]

REACTIONS (1)
  - Hyperthyroidism [None]

NARRATIVE: CASE EVENT DATE: 20140724
